FAERS Safety Report 20803360 (Version 7)
Quarter: 2022Q3

REPORT INFORMATION
  Report Type: Report from Study
  Country: ES (occurrence: ES)
  Receive Date: 20220509
  Receipt Date: 20220719
  Transmission Date: 20221027
  Serious: Yes (Hospitalization)
  Sender: FDA-Public Use
  Company Number: ES-NOVARTISPH-NVSC2022ES102254

PATIENT
  Age: 64 Year
  Sex: Female
  Weight: 63.4 kg

DRUGS (3)
  1. BATOPROTAFIB [Suspect]
     Active Substance: BATOPROTAFIB
     Indication: Colorectal cancer
     Dosage: 20 MG, QD
     Route: 048
     Dates: start: 20220420, end: 20220430
  2. RINETERKIB [Suspect]
     Active Substance: RINETERKIB
     Indication: Colorectal cancer
     Dosage: 200 MG, QD
     Route: 048
     Dates: start: 20220420, end: 20220430
  3. DABRAFENIB [Suspect]
     Active Substance: DABRAFENIB
     Indication: Colorectal cancer
     Dosage: 150 MG, QD
     Route: 048
     Dates: start: 20220420, end: 20220430

REACTIONS (3)
  - Pyrexia [Recovered/Resolved]
  - Rash pruritic [Recovered/Resolved]
  - Hypertransaminasaemia [Recovering/Resolving]

NARRATIVE: CASE EVENT DATE: 20220429
